FAERS Safety Report 8541272-1 (Version None)
Quarter: 2012Q3

REPORT INFORMATION
  Report Type: 
  Country: None (occurrence: None)
  Receive Date: 20120726
  Receipt Date: 20111018
  Transmission Date: 20120928
  Serious: No
  Sender: FDA-Public Use
  Company Number: US-ASTRAZENECA-2011SE56749

PATIENT
  Age: 38 Year
  Sex: Female

DRUGS (11)
  1. SEROQUEL XR [Suspect]
     Indication: DEPRESSION
     Route: 048
  2. SEROQUEL XR [Suspect]
     Route: 048
  3. SEROQUEL XR [Suspect]
     Dosage: ONE TABLET AT NIGHT
     Route: 048
  4. SEROQUEL XR [Suspect]
     Indication: OBSESSIVE-COMPULSIVE DISORDER
     Route: 048
  5. SEROQUEL XR [Suspect]
     Route: 048
  6. SEROQUEL XR [Suspect]
     Dosage: ONE TABLET AT NIGHT
     Route: 048
  7. LUVOX CR [Concomitant]
  8. PROPRANOLOL [Concomitant]
  9. SEROQUEL XR [Suspect]
     Route: 048
  10. DEPAKOTE [Concomitant]
  11. SEROQUEL XR [Suspect]
     Route: 048

REACTIONS (15)
  - PRURITUS [None]
  - CARDIOVASCULAR INSUFFICIENCY [None]
  - RESTLESS LEGS SYNDROME [None]
  - MUSCLE SPASMS [None]
  - DRUG INEFFECTIVE [None]
  - BLEPHAROSPASM [None]
  - HYPERTENSION [None]
  - MUSCLE TIGHTNESS [None]
  - DRUG DOSE OMISSION [None]
  - OFF LABEL USE [None]
  - DIARRHOEA [None]
  - PANIC ATTACK [None]
  - INSOMNIA [None]
  - OBSESSIVE-COMPULSIVE DISORDER [None]
  - INCORRECT DOSE ADMINISTERED [None]
